FAERS Safety Report 25360633 (Version 1)
Quarter: 2025Q2

REPORT INFORMATION
  Report Type: Spontaneous
  Country: US (occurrence: US)
  Receive Date: 20250527
  Receipt Date: 20250527
  Transmission Date: 20250716
  Serious: Yes (Other)
  Sender: COOPERSURGICAL
  Company Number: US-COOPERSURGICAL, INC.-2025CPS004090

PATIENT
  Age: 34 Year
  Sex: Female
  Weight: 97.506 kg

DRUGS (1)
  1. PARAGARD T 380A [Suspect]
     Active Substance: COPPER
     Route: 015
     Dates: start: 200812

REACTIONS (13)
  - Abortion spontaneous [Recovered/Resolved]
  - Infertility female [Not Recovered/Not Resolved]
  - Laparotomy [Unknown]
  - Caesarean section [Unknown]
  - Device breakage [Not Recovered/Not Resolved]
  - Foreign body in reproductive tract [Not Recovered/Not Resolved]
  - Complication of device removal [Not Recovered/Not Resolved]
  - Embedded device [Not Recovered/Not Resolved]
  - Emotional disorder [Unknown]
  - Pelvic pain [Unknown]
  - Abnormal uterine bleeding [Unknown]
  - Off label use [Unknown]
  - Intentional device use issue [Unknown]

NARRATIVE: CASE EVENT DATE: 20190325
